FAERS Safety Report 6773525-1 (Version None)
Quarter: 2010Q2

REPORT INFORMATION
  Report Type: 
  Country: None (occurrence: None)
  Receive Date: 20100616
  Receipt Date: 20100529
  Transmission Date: 20101027
  Serious: No
  Sender: FDA-Public Use
  Company Number: US-ABBOTT-10P-163-0649004-00

PATIENT
  Sex: Female

DRUGS (5)
  1. TRILIPIX [Suspect]
     Indication: DRUG USE FOR UNKNOWN INDICATION
     Dates: start: 20100401
  2. UNKNOWN THYROID MEDICATION [Concomitant]
     Indication: THYROIDECTOMY
  3. DIOVAN [Concomitant]
     Indication: CARDIAC DISORDER
  4. TOPROL-XL [Concomitant]
     Indication: CARDIAC DISORDER
  5. SPIRONOLACTONE [Concomitant]
     Indication: CARDIAC DISORDER

REACTIONS (1)
  - RASH [None]
